FAERS Safety Report 25128588 (Version 2)
Quarter: 2025Q2

REPORT INFORMATION
  Report Type: Spontaneous
  Country: US (occurrence: US)
  Receive Date: 20250327
  Receipt Date: 20250417
  Transmission Date: 20250716
  Serious: Yes (Other)
  Sender: MARINUS PHARMACEUTICALS
  Company Number: US-MARINUS PHARMACEUTICALS, INC.-MAR2025000058

PATIENT

DRUGS (4)
  1. ZTALMY [Suspect]
     Active Substance: GANAXOLONE
     Indication: CDKL5 deficiency disorder
     Route: 048
  2. LAMICTAL [Concomitant]
     Active Substance: LAMOTRIGINE
     Indication: Product used for unknown indication
     Route: 065
  3. KEPPRA [Concomitant]
     Active Substance: LEVETIRACETAM
     Indication: Product used for unknown indication
     Route: 065
  4. TOPAMAX [Concomitant]
     Active Substance: TOPIRAMATE
     Indication: Product used for unknown indication
     Route: 065

REACTIONS (1)
  - Seizure [Not Recovered/Not Resolved]

NARRATIVE: CASE EVENT DATE: 20250101
